FAERS Safety Report 7250570-3 (Version None)
Quarter: 2011Q1

REPORT INFORMATION
  Report Type: 
  Country: None (occurrence: None)
  Receive Date: 20110110
  Receipt Date: 20110110
  Transmission Date: 20110831
  Serious: Yes (Life-Threatening, Hospitalization, Other)
  Sender: FDA-Public Use
  Company Number: None

PATIENT
  Sex: Female
  Weight: 84.369 kg

DRUGS (1)
  1. VERSAPRO ALCOHOL PADS ISOPROPYL ALCOHOL, 70% V/V MEDICAL SPEIALITIES D [Suspect]
     Indication: THERAPEUTIC SKIN CARE TOPICAL
     Dosage: 2 PADS Q8 8-9 WEEKS

REACTIONS (3)
  - SEPSIS [None]
  - APPLICATION SITE INFECTION [None]
  - BACTERIAL INFECTION [None]
